FAERS Safety Report 7581387-8 (Version None)
Quarter: 2011Q2

REPORT INFORMATION
  Report Type: 
  Country: None (occurrence: None)
  Receive Date: 20110629
  Receipt Date: 20110621
  Transmission Date: 20111010
  Serious: Yes (Hospitalization)
  Sender: FDA-Public Use
  Company Number: US-BAXTER-2011BH018486

PATIENT
  Sex: Female

DRUGS (3)
  1. DIANEAL [Suspect]
     Indication: PERITONEAL DIALYSIS
     Route: 033
  2. DILANTIN [Concomitant]
     Route: 065
  3. DILANTIN [Suspect]
     Indication: CONVULSION
     Route: 065

REACTIONS (1)
  - GRAND MAL CONVULSION [None]
